FAERS Safety Report 10817771 (Version 2)
Quarter: 2015Q1

REPORT INFORMATION
  Report Type: Report from Study
  Country: BR (occurrence: BR)
  Receive Date: 20150218
  Receipt Date: 20150313
  Transmission Date: 20150721
  Serious: Yes (Hospitalization)
  Sender: FDA-Public Use
  Company Number: BR-ABBVIE-15K-020-1346239-00

PATIENT
  Age: 21 Year
  Sex: Female
  Weight: 95 kg

DRUGS (7)
  1. HUMIRA [Suspect]
     Active Substance: ADALIMUMAB
     Dosage: LOADING DOSE
     Route: 058
  2. HUMIRA [Suspect]
     Active Substance: ADALIMUMAB
     Dosage: LOADING DOSE
     Route: 058
  3. MEZOLIUM [Concomitant]
     Indication: GASTRITIS
     Route: 048
     Dates: start: 201412
  4. DEPURA [Concomitant]
     Active Substance: CHOLECALCIFEROL
     Indication: VITAMIN SUPPLEMENTATION
     Route: 048
     Dates: start: 201501
  5. HUMIRA [Suspect]
     Active Substance: ADALIMUMAB
     Route: 058
  6. PRELONE [Concomitant]
     Active Substance: PREDNISOLONE
     Indication: GASTROINTESTINAL INFECTION
     Route: 048
     Dates: start: 201501
  7. HUMIRA [Suspect]
     Active Substance: ADALIMUMAB
     Indication: CROHN^S DISEASE
     Dosage: LOADING DOSE
     Route: 058
     Dates: start: 20140301, end: 20140301

REACTIONS (8)
  - Immunodeficiency [Unknown]
  - Gastrointestinal infection [Unknown]
  - Crohn^s disease [Unknown]
  - Nervousness [Unknown]
  - Irritable bowel syndrome [Recovering/Resolving]
  - Pain [Recovered/Resolved]
  - Stress [Unknown]
  - Sepsis [Recovering/Resolving]

NARRATIVE: CASE EVENT DATE: 20150202
